FAERS Safety Report 13444690 (Version 1)
Quarter: 2017Q2

REPORT INFORMATION
  Report Type: Spontaneous
  Country: JP (occurrence: JP)
  Receive Date: 20170414
  Receipt Date: 20170414
  Transmission Date: 20170830
  Serious: Yes (Other)
  Sender: FDA-Public Use
  Company Number: JP-GILEAD-2017-0266807

PATIENT
  Age: 61 Year
  Sex: Female

DRUGS (2)
  1. HEPSERA [Suspect]
     Active Substance: ADEFOVIR DIPIVOXIL
     Indication: CHRONIC HEPATITIS B
     Dosage: UNK
     Route: 048
  2. ZEFIX [Suspect]
     Active Substance: LAMIVUDINE
     Indication: CHRONIC HEPATITIS B
     Dosage: UNK
     Route: 048

REACTIONS (6)
  - Gait disturbance [Recovering/Resolving]
  - Hyperreflexia [Unknown]
  - Fanconi syndrome acquired [Unknown]
  - Muscular weakness [Recovering/Resolving]
  - Hypophosphataemia [Unknown]
  - Renal impairment [Unknown]
